FAERS Safety Report 8303893-0 (Version None)
Quarter: 2012Q2

REPORT INFORMATION
  Report Type: 
  Country: None (occurrence: None)
  Receive Date: 20120420
  Receipt Date: 20120420
  Transmission Date: 20120825
  Serious: Yes (Hospitalization)
  Sender: FDA-Public Use
  Company Number: None

PATIENT
  Age: 60 Year
  Sex: Male

DRUGS (3)
  1. RIBAVIRIN [Suspect]
     Dosage: 1400MG DAILY PO
     Route: 048
     Dates: start: 20120209, end: 20120410
  2. VICTRELIS [Concomitant]
  3. PEGASYS [Suspect]
     Dosage: 180MCG QWEEK SQ
     Route: 058
     Dates: start: 20120209, end: 20120410

REACTIONS (5)
  - HYPOTENSION [None]
  - RED BLOOD CELL COUNT DECREASED [None]
  - WHITE BLOOD CELL COUNT DECREASED [None]
  - DIZZINESS [None]
  - PLATELET COUNT DECREASED [None]
